FAERS Safety Report 4269760-7 (Version None)
Quarter: 2004Q1

REPORT INFORMATION
  Report Type: 
  Country: None (occurrence: None)
  Receive Date: 20040105
  Receipt Date: 20011130
  Transmission Date: 20041129
  Serious: Yes (Hospitalization)
  Sender: FDA-Public Use
  Company Number: 200110190BBE

PATIENT
  Sex: Male

DRUGS (4)
  1. HELIXATE FS [Suspect]
     Indication: FACTOR VIII DEFICIENCY
     Dosage: 2474 IU, TOTAL DAILY, INTRAVENOUS
     Route: 042
     Dates: start: 20010301
  2. NOVO-7 [Concomitant]
  3. TOBRAMYCIN [Concomitant]
  4. CEFEPIME [Concomitant]

REACTIONS (11)
  - BACTERIAL INFECTION [None]
  - CATHETER RELATED INFECTION [None]
  - CHILLS [None]
  - ENTEROBACTER INFECTION [None]
  - INFUSION SITE REACTION [None]
  - LETHARGY [None]
  - PSEUDOMONAS INFECTION [None]
  - PYREXIA [None]
  - SKIN IRRITATION [None]
  - TREMOR [None]
  - VOMITING [None]
